FAERS Safety Report 7916699-9 (Version None)
Quarter: 2011Q4

REPORT INFORMATION
  Report Type: 
  Country: None (occurrence: None)
  Receive Date: 20111107
  Receipt Date: 20111102
  Transmission Date: 20120403
  Serious: Yes (Other)
  Sender: FDA-Public Use
  Company Number: 2011030210

PATIENT
  Age: 45 Year
  Sex: Male
  Weight: 65.7716 kg

DRUGS (12)
  1. ZEMAIRA [Suspect]
     Indication: ALPHA-1 ANTI-TRYPSIN DEFICIENCY
     Dosage: SEE IMAGE INTRAVENOUS
     Route: 042
     Dates: start: 20060228
  2. ZEMAIRA [Suspect]
     Indication: ALPHA-1 ANTI-TRYPSIN DEFICIENCY
     Dosage: SEE IMAGE INTRAVENOUS
     Route: 042
     Dates: start: 20111001
  3. GUAIFENESIN [Concomitant]
  4. AUGMENTIN '125' [Concomitant]
  5. ALBUTEROL [Concomitant]
  6. CLARITIN [Concomitant]
  7. ALENDRONATE SODIUM [Concomitant]
  8. VITAMIN D [Concomitant]
  9. SPIRIVA [Concomitant]
  10. ADVAIR HFA [Concomitant]
  11. LORAZEPAM [Concomitant]
  12. ACETAMINOPHEN [Concomitant]

REACTIONS (2)
  - BRONCHITIS [None]
  - RESPIRATORY TRACT INFECTION [None]
